FAERS Safety Report 5585333-8 (Version None)
Quarter: 2008Q1

REPORT INFORMATION
  Report Type: 
  Country: None (occurrence: None)
  Receive Date: 20080104
  Receipt Date: 20080104
  Transmission Date: 20080703
  Serious: Yes (Hospitalization)
  Sender: FDA-Public Use
  Company Number: None

PATIENT
  Age: 63 Year
  Sex: Female
  Weight: 62 kg

DRUGS (8)
  1. DOCETAXEL [Suspect]
     Indication: BREAST CANCER
     Dates: start: 20071023
  2. CAPECITABINE [Suspect]
     Indication: BREAST CANCER
     Dates: start: 20071023
  3. ALENDRONATE SODIUM [Concomitant]
  4. PROCHLORPERAZINE [Concomitant]
  5. DEXAMETHASONE TAB [Concomitant]
  6. OXYCODONE AND ACETAMINOPHEN [Concomitant]
  7. MAGIC MOUTHWASH [Concomitant]
  8. MULTI-VITAMIN [Concomitant]

REACTIONS (1)
  - PYREXIA [None]
